FAERS Safety Report 10302529 (Version 1)
Quarter: 2014Q3

REPORT INFORMATION
  Report Type: Spontaneous
  Country: JP (occurrence: JP)
  Receive Date: 20140714
  Receipt Date: 20140714
  Transmission Date: 20150326
  Serious: Yes (Other)
  Sender: FDA-Public Use
  Company Number: PHHY2011JP120531

PATIENT

DRUGS (3)
  1. TASIGNA [Suspect]
     Active Substance: NILOTINIB
     Dosage: 400 MG, UNK
  2. TASIGNA [Suspect]
     Active Substance: NILOTINIB
  3. TASIGNA [Suspect]
     Active Substance: NILOTINIB
     Dosage: 200 MG, UNK

REACTIONS (3)
  - Pneumonia [Unknown]
  - Haematotoxicity [Unknown]
  - Pleural effusion [Unknown]
